FAERS Safety Report 4886709-4 (Version None)
Quarter: 2005Q4

REPORT INFORMATION
  Report Type: 
  Country: None (occurrence: None)
  Receive Date: 20051220
  Receipt Date: 20050123
  Transmission Date: 20060501
  Serious: Yes (Hospitalization)
  Sender: FDA-Public Use
  Company Number: HQWYE903927JAN05

PATIENT
  Age: 49 Year
  Sex: Female
  Weight: 83.99 kg

DRUGS (16)
  1. EFFEXOR XR [Suspect]
     Indication: DEPRESSION
     Dosage: 300 MG 1X PER 1 DAY, ORAL; 225 MG 1X PER 1 DAY, ORAL; 150 MG 1X PER 1 DAY, ORAL
     Route: 048
     Dates: start: 20010301, end: 20050114
  2. EFFEXOR XR [Suspect]
     Indication: FIBROMYALGIA
     Dosage: 300 MG 1X PER 1 DAY, ORAL; 225 MG 1X PER 1 DAY, ORAL; 150 MG 1X PER 1 DAY, ORAL
     Route: 048
     Dates: start: 20010301, end: 20050114
  3. EFFEXOR XR [Suspect]
     Indication: DEPRESSION
     Dosage: 300 MG 1X PER 1 DAY, ORAL; 225 MG 1X PER 1 DAY, ORAL; 150 MG 1X PER 1 DAY, ORAL
     Route: 048
     Dates: start: 20050115, end: 20050131
  4. EFFEXOR XR [Suspect]
     Indication: FIBROMYALGIA
     Dosage: 300 MG 1X PER 1 DAY, ORAL; 225 MG 1X PER 1 DAY, ORAL; 150 MG 1X PER 1 DAY, ORAL
     Route: 048
     Dates: start: 20050115, end: 20050131
  5. EFFEXOR XR [Suspect]
     Indication: DEPRESSION
     Dosage: 300 MG 1X PER 1 DAY, ORAL; 225 MG 1X PER 1 DAY, ORAL; 150 MG 1X PER 1 DAY, ORAL
     Route: 048
     Dates: start: 20050201
  6. EFFEXOR XR [Suspect]
     Indication: FIBROMYALGIA
     Dosage: 300 MG 1X PER 1 DAY, ORAL; 225 MG 1X PER 1 DAY, ORAL; 150 MG 1X PER 1 DAY, ORAL
     Route: 048
     Dates: start: 20050201
  7. HYZAAR [Concomitant]
  8. VIOXX [Concomitant]
  9. GLUCOPHAGE [Concomitant]
  10. ACTOS [Concomitant]
  11. ALPHAGAN [Concomitant]
  12. IMITREX [Concomitant]
  13. TRAZODONE (TRAZODONE) [Concomitant]
  14. ATIVAN [Concomitant]
  15. VICODIN [Concomitant]
  16. ULTRAM [Concomitant]

REACTIONS (4)
  - CHEST PAIN [None]
  - CONDITION AGGRAVATED [None]
  - HYPERTENSION [None]
  - UPPER RESPIRATORY TRACT INFECTION [None]
